FAERS Safety Report 7217847-9 (Version None)
Quarter: 2010Q4

REPORT INFORMATION
  Report Type: 
  Country: None (occurrence: None)
  Receive Date: 20101223
  Receipt Date: 20101215
  Transmission Date: 20110411
  Serious: Yes (Hospitalization)
  Sender: FDA-Public Use
  Company Number: 2010SP062671

PATIENT
  Age: 78 Year
  Sex: Male
  Weight: 58.9 kg

DRUGS (3)
  1. PEG-INTRON (PEGINTERFERON ALFA-2B /01543001/) [Suspect]
     Indication: HEPATITIS C
     Dosage: 0.5 MCG/KG;QW;SC
     Route: 058
     Dates: start: 20071211, end: 20101125
  2. LOXONIN (LOXOPROFEN) [Suspect]
     Indication: PYREXIA
     Dosage: 60 MG; PRN; PO
     Route: 048
     Dates: start: 20080304
  3. MAGNESIUM OXIDE [Concomitant]

REACTIONS (7)
  - ABDOMINAL PAIN [None]
  - DIVERTICULUM [None]
  - DUODENAL ULCER HAEMORRHAGE [None]
  - HAEMATEMESIS [None]
  - LOWER GASTROINTESTINAL HAEMORRHAGE [None]
  - MELAENA [None]
  - SUBDURAL HAEMATOMA [None]
